FAERS Safety Report 5614555-2 (Version None)
Quarter: 2008Q1

REPORT INFORMATION
  Report Type: 
  Country: None (occurrence: None)
  Receive Date: 20080205
  Receipt Date: 20080110
  Transmission Date: 20080703
  Serious: No
  Sender: FDA-Public Use
  Company Number: US-BOEHRINGER INGELHEIM GMBH, GERMANY-2007-BP-26017BP

PATIENT
  Sex: Male
  Weight: 99 kg

DRUGS (14)
  1. SPIRIVA [Suspect]
     Indication: CHRONIC OBSTRUCTIVE PULMONARY DISEASE
     Dates: start: 20070201, end: 20070509
  2. SPIRIVA [Suspect]
     Indication: ASTHMA
  3. SPIRIVA [Suspect]
     Indication: EMPHYSEMA
  4. SPIRIVA [Suspect]
     Indication: BRONCHITIS CHRONIC
  5. SPIRIVA [Suspect]
     Indication: DYSPNOEA
  6. SPIRIVA [Suspect]
     Indication: PULMONARY FUNCTION TEST DECREASED
  7. ALBUTEROL [Concomitant]
     Dates: start: 20010101, end: 20070101
  8. COMBIVENT [Concomitant]
     Dates: start: 20000101, end: 20070101
  9. FORADIL [Concomitant]
     Dates: start: 20010101, end: 20070101
  10. PRILOSEC [Concomitant]
     Dates: start: 19890101, end: 20070101
  11. GLUCOPHAGE [Concomitant]
     Dates: start: 20030101, end: 20070101
  12. REGLAN [Concomitant]
     Dates: start: 20050101, end: 20070101
  13. PRINIVIL [Concomitant]
     Dates: start: 20050101, end: 20070101
  14. SKELAXIN [Concomitant]
     Dates: start: 20000101, end: 20070101

REACTIONS (1)
  - DRUG INEFFECTIVE [None]
